FAERS Safety Report 9407079 (Version 2)
Quarter: 2013Q3

REPORT INFORMATION
  Report Type: Spontaneous
  Country: DE (occurrence: DE)
  Receive Date: 20130718
  Receipt Date: 20130926
  Transmission Date: 20140515
  Serious: Yes (Hospitalization)
  Sender: FDA-Public Use
  Company Number: DE-ASTELLAS-2013US007507

PATIENT
  Age: 35 Year
  Sex: Female
  Weight: 53 kg

DRUGS (1)
  1. AMBISOME [Suspect]
     Indication: NEUTROPENIA
     Dosage: 150 MG, UNKNOWN/D
     Route: 042
     Dates: start: 20130619

REACTIONS (5)
  - Sensation of foreign body [Recovered/Resolved]
  - Lip swelling [Recovered/Resolved]
  - Anaphylactic shock [Recovered/Resolved]
  - Swelling face [Recovered/Resolved]
  - Blood pressure decreased [Recovered/Resolved]
